FAERS Safety Report 9471505 (Version 2)
Quarter: 2013Q3

REPORT INFORMATION
  Report Type: Spontaneous
  Country: US (occurrence: US)
  Receive Date: 20130822
  Receipt Date: 20130926
  Transmission Date: 20140515
  Serious: Yes (Hospitalization)
  Sender: FDA-Public Use
  Company Number: US-PFIZER INC-2013241284

PATIENT
  Sex: Female

DRUGS (1)
  1. AMLODIPINE BESILATE [Suspect]
     Dosage: UNK

REACTIONS (6)
  - Hypersensitivity [Unknown]
  - Transient ischaemic attack [Unknown]
  - Hypertensive crisis [Unknown]
  - Hallucination [Unknown]
  - Speech disorder [Unknown]
  - Insomnia [Unknown]
